FAERS Safety Report 4379783-5 (Version None)
Quarter: 2004Q2

REPORT INFORMATION
  Report Type: 
  Country: None (occurrence: None)
  Receive Date: 20040614
  Receipt Date: 20040528
  Transmission Date: 20050107
  Serious: Yes (Death, Hospitalization, Other)
  Sender: FDA-Public Use
  Company Number: 184955

PATIENT
  Sex: Female

DRUGS (7)
  1. AVONEX [Suspect]
     Indication: MULTIPLE SCLEROSIS
     Dosage: 30 MCG QW IM
     Route: 030
     Dates: start: 19990101, end: 20030901
  2. CELEXA [Concomitant]
  3. BUSPAR [Concomitant]
  4. PROVIGIL [Concomitant]
  5. RESTORIL [Concomitant]
  6. PRILOSEC [Concomitant]
  7. ALLEGRA [Concomitant]

REACTIONS (4)
  - CROHN'S DISEASE [None]
  - LEUKAEMIA [None]
  - LYMPHOMA [None]
  - MYELODYSPLASTIC SYNDROME [None]
